FAERS Safety Report 8184855-3 (Version None)
Quarter: 2012Q1

REPORT INFORMATION
  Report Type: 
  Country: None (occurrence: None)
  Receive Date: 20120305
  Receipt Date: 20120301
  Transmission Date: 20120608
  Serious: Yes (Death, Hospitalization)
  Sender: FDA-Public Use
  Company Number: NZ-B.I. PHARMACEUTICALS,INC./RIDGEFIELD-2011-AU-00526AU

PATIENT
  Sex: Female
  Weight: 80 kg

DRUGS (6)
  1. FUROSEMIDE [Suspect]
     Indication: CARDIAC FAILURE CONGESTIVE
     Dosage: 40 MG
     Dates: start: 20110203
  2. FUROSEMIDE [Suspect]
     Indication: MYOCARDIAL ISCHAEMIA
  3. PRADAXA [Suspect]
     Indication: ATRIAL FIBRILLATION
     Dosage: 220 MG
     Dates: start: 20110629, end: 20110715
  4. METOPROLOL SUCCINATE [Concomitant]
     Dosage: 47.5 MG
     Dates: start: 20110112
  5. DURIDE [Concomitant]
     Dosage: 30 MG
     Dates: start: 20110112
  6. MULTIADE [Concomitant]
     Dosage: 1 DAILY
     Dates: start: 20110203

REACTIONS (4)
  - MYOCARDIAL ISCHAEMIA [None]
  - RENAL IMPAIRMENT [None]
  - GINGIVAL BLEEDING [None]
  - GASTROINTESTINAL HAEMORRHAGE [None]
